FAERS Safety Report 11267661 (Version 2)
Quarter: 2015Q3

REPORT INFORMATION
  Report Type: Spontaneous
  Country: JP (occurrence: JP)
  Receive Date: 20150713
  Receipt Date: 20150825
  Transmission Date: 20151125
  Serious: Yes (Other)
  Sender: FDA-Public Use
  Company Number: JP-GLAXOSMITHKLINE-JP2015JPN097979

PATIENT
  Sex: Male

DRUGS (2)
  1. UNKNOWN DRUG [Concomitant]
     Active Substance: UNSPECIFIED INGREDIENT
  2. REVOLADE [Suspect]
     Active Substance: ELTROMBOPAG
     Indication: IMMUNE THROMBOCYTOPENIC PURPURA
     Dosage: 50 MG, 1D
     Route: 048
     Dates: start: 20141105, end: 20150710

REACTIONS (3)
  - Spur cell anaemia [Unknown]
  - Blast cell count increased [Unknown]
  - Myelofibrosis [Not Recovered/Not Resolved]
